FAERS Safety Report 20750933 (Version 1)
Quarter: 2022Q2

REPORT INFORMATION
  Report Type: Spontaneous
  Country: US (occurrence: US)
  Receive Date: 20220426
  Receipt Date: 20220426
  Transmission Date: 20220721
  Serious: No
  Sender: FDA-Public Use
  Company Number: US-PFIZER INC-202101218694

PATIENT
  Age: 56 Year
  Sex: Male
  Weight: 95.25 kg

DRUGS (1)
  1. CHANTIX [Suspect]
     Active Substance: VARENICLINE TARTRATE
     Indication: Smoking cessation therapy
     Dosage: UNK (0.5)

REACTIONS (2)
  - Recalled product administered [Unknown]
  - Nightmare [Not Recovered/Not Resolved]
